FAERS Safety Report 5382809-3 (Version None)
Quarter: 2007Q3

REPORT INFORMATION
  Report Type: 
  Country: None (occurrence: None)
  Receive Date: 20070710
  Receipt Date: 20070702
  Transmission Date: 20080115
  Serious: Yes (Hospitalization)
  Sender: FDA-Public Use
  Company Number: US-AMGEN-US226742

PATIENT
  Sex: Female
  Weight: 50.5 kg

DRUGS (1)
  1. SENSIPAR [Suspect]
     Indication: HYPERPARATHYROIDISM SECONDARY
     Route: 048
     Dates: start: 20070510, end: 20070528

REACTIONS (4)
  - DISORIENTATION [None]
  - NAUSEA [None]
  - STOMACH DISCOMFORT [None]
  - URINARY TRACT INFECTION [None]
